FAERS Safety Report 6717416-0 (Version None)
Quarter: 2010Q2

REPORT INFORMATION
  Report Type: 
  Country: None (occurrence: None)
  Receive Date: 20100510
  Receipt Date: 20100506
  Transmission Date: 20101027
  Serious: Yes (Hospitalization)
  Sender: FDA-Public Use
  Company Number: DE-ROCHE-640743

PATIENT
  Sex: Female
  Weight: 60 kg

DRUGS (3)
  1. PEGINTERFERON ALFA-2A [Suspect]
     Route: 058
     Dates: start: 20090106, end: 20091201
  2. RIBAVIRIN [Suspect]
     Route: 048
     Dates: start: 20090106, end: 20091207
  3. BLINDED TELAPREVIR [Suspect]
     Dosage: DOSE 3 X 2
     Route: 048
     Dates: start: 20090106, end: 20090427

REACTIONS (2)
  - ANAEMIA [None]
  - GENERAL PHYSICAL HEALTH DETERIORATION [None]
